FAERS Safety Report 8443997-5 (Version None)
Quarter: 2012Q2

REPORT INFORMATION
  Report Type: 
  Country: None (occurrence: None)
  Receive Date: 20120618
  Receipt Date: 20120611
  Transmission Date: 20120825
  Serious: Yes (Other)
  Sender: FDA-Public Use
  Company Number: PHHY2012JP044775

PATIENT
  Age: 84 Year
  Sex: Male

DRUGS (4)
  1. EXELON [Suspect]
     Dosage: 13.3MG, DAILY
     Route: 062
  2. EXELON [Suspect]
     Indication: DEMENTIA ALZHEIMER'S TYPE
     Dosage: 4.5 MG DAILY
     Route: 062
     Dates: start: 20111220
  3. MEMANTINE HYDROCHLORIDE [Concomitant]
     Dosage: 20 MG, UNK
     Route: 048
  4. MENEST [Concomitant]
     Dosage: 100 MG, UNK
     Route: 048

REACTIONS (4)
  - EPILEPSY [None]
  - MALAISE [None]
  - FALL [None]
  - LOSS OF CONSCIOUSNESS [None]
